FAERS Safety Report 19209592 (Version 7)
Quarter: 2022Q1

REPORT INFORMATION
  Report Type: Report from Study
  Country: US (occurrence: US)
  Receive Date: 20210503
  Receipt Date: 20220214
  Transmission Date: 20220423
  Serious: Yes (Hospitalization, Other)
  Sender: FDA-Public Use
  Company Number: US-ABBVIE-21K-163-3883442-00

PATIENT
  Age: 61 Year
  Sex: Female
  Weight: 51.302 kg

DRUGS (3)
  1. RINVOQ [Suspect]
     Active Substance: UPADACITINIB
     Indication: Rheumatoid arthritis
     Route: 048
     Dates: start: 2020
  2. RINVOQ [Suspect]
     Active Substance: UPADACITINIB
     Route: 048
  3. RINVOQ [Suspect]
     Active Substance: UPADACITINIB
     Route: 048

REACTIONS (26)
  - Haemoglobin abnormal [Unknown]
  - Upper gastrointestinal haemorrhage [Unknown]
  - Shock [Unknown]
  - Haemorrhage [Unknown]
  - Rectal haemorrhage [Unknown]
  - Gastric haemorrhage [Unknown]
  - Night sweats [Recovered/Resolved]
  - Body temperature increased [Unknown]
  - Foot deformity [Not Recovered/Not Resolved]
  - Unevaluable event [Recovered/Resolved]
  - Nasopharyngitis [Recovered/Resolved]
  - Weight decreased [Recovering/Resolving]
  - Iron deficiency [Recovered/Resolved]
  - Inflammation [Unknown]
  - Fibromyalgia [Unknown]
  - Gastrooesophageal reflux disease [Unknown]
  - Asthenia [Unknown]
  - Infusion related reaction [Unknown]
  - Limb mass [Unknown]
  - Haematochezia [Unknown]
  - Foot deformity [Unknown]
  - Uterine disorder [Unknown]
  - Gastric disorder [Unknown]
  - Arthritis [Not Recovered/Not Resolved]
  - Joint effusion [Unknown]
  - Hernia [Unknown]

NARRATIVE: CASE EVENT DATE: 20201001
